FAERS Safety Report 18873546 (Version 1)
Quarter: 2021Q1

REPORT INFORMATION
  Report Type: Spontaneous
  Country: FR (occurrence: FR)
  Receive Date: 20210210
  Receipt Date: 20210210
  Transmission Date: 20210420
  Serious: Yes (Hospitalization, Other)
  Sender: FDA-Public Use
  Company Number: FR-GLAXOSMITHKLINE-FR2021033819

PATIENT
  Age: 69 Year
  Sex: Female
  Weight: 64.5 kg

DRUGS (2)
  1. ACICLOVIR [Suspect]
     Active Substance: ACYCLOVIR
     Indication: MENINGOENCEPHALITIS HERPETIC
     Dosage: 2100 MG, QD
     Route: 042
     Dates: start: 20201109, end: 20201207
  2. VIMPAT [Suspect]
     Active Substance: LACOSAMIDE
     Indication: ENCEPHALITIS
     Dosage: 400 MG, QD
     Route: 042
     Dates: start: 202011, end: 20201216

REACTIONS (2)
  - Acute kidney injury [Recovered/Resolved]
  - Overdose [Recovered/Resolved]

NARRATIVE: CASE EVENT DATE: 20201207
